FAERS Safety Report 4363586-1 (Version None)
Quarter: 2004Q2

REPORT INFORMATION
  Report Type: 
  Country: None (occurrence: None)
  Receive Date: 20040524
  Receipt Date: 20040524
  Transmission Date: 20050107
  Serious: Yes (Other)
  Sender: FDA-Public Use
  Company Number: None

PATIENT
  Age: 49 Year
  Sex: Female
  Weight: 85.7298 kg

DRUGS (2)
  1. OXYCONTIN [Suspect]
     Indication: FIBROMYALGIA
     Dosage: 80 MG 1 PO BID
     Route: 048
  2. OXYCONTIN [Suspect]
     Indication: PAIN
     Dosage: 80 MG 1 PO BID
     Route: 048

REACTIONS (3)
  - DYSPNOEA [None]
  - PHARMACEUTICAL PRODUCT COMPLAINT [None]
  - SWELLING [None]
